FAERS Safety Report 8028653-X (Version None)
Quarter: 2012Q1

REPORT INFORMATION
  Report Type: 
  Country: None (occurrence: None)
  Receive Date: 20120106
  Receipt Date: 20111227
  Transmission Date: 20120608
  Serious: Yes (Hospitalization)
  Sender: FDA-Public Use
  Company Number: US-ACTELION-A-US2011-58928

PATIENT

DRUGS (4)
  1. LISINOPRIL [Concomitant]
  2. COUMADIN [Concomitant]
  3. BUMETANIDE [Concomitant]
  4. EPOPROSTENOL SODIUM [Suspect]
     Indication: PULMONARY ARTERIAL HYPERTENSION
     Dosage: 38 NG/KG, PER MIN
     Route: 042
     Dates: start: 20100818

REACTIONS (5)
  - DIZZINESS [None]
  - CHEST PAIN [None]
  - ROAD TRAFFIC ACCIDENT [None]
  - DEVICE MALFUNCTION [None]
  - ARTHRALGIA [None]
